FAERS Safety Report 10970105 (Version 1)
Quarter: 2015Q1

REPORT INFORMATION
  Report Type: Spontaneous
  Country: US (occurrence: None)
  Receive Date: 20150330
  Receipt Date: 20150330
  Transmission Date: 20150721
  Serious: Yes (Other)
  Sender: FDA-Public Use
  Company Number: None

PATIENT
  Age: 50 Year
  Sex: Female
  Weight: 54.43 kg

DRUGS (3)
  1. IBUPROFEN. [Concomitant]
     Active Substance: IBUPROFEN
  2. MINASTRIN 24 FE [Suspect]
     Active Substance: ETHINYL ESTRADIOL\NORETHINDRONE ACETATE
     Indication: MENORRHAGIA
     Dosage: ONE PILL DAILY, ONCE DAILY
     Dates: start: 20150115, end: 20150327
  3. MINASTRIN 24 FE [Suspect]
     Active Substance: ETHINYL ESTRADIOL\NORETHINDRONE ACETATE
     Indication: DYSMENORRHOEA
     Dosage: ONE PILL DAILY, ONCE DAILY
     Dates: start: 20150115, end: 20150327

REACTIONS (4)
  - Screaming [None]
  - Mood swings [None]
  - Crying [None]
  - Suicidal ideation [None]

NARRATIVE: CASE EVENT DATE: 20150318
